FAERS Safety Report 9617479 (Version 1)
Quarter: 2013Q4

REPORT INFORMATION
  Report Type: Spontaneous
  Country: US (occurrence: None)
  Receive Date: 20131009
  Receipt Date: 20131009
  Transmission Date: 20140711
  Serious: Yes (Disabling)
  Sender: FDA-Public Use
  Company Number: IPC201309-000374

PATIENT
  Age: 70 Year
  Sex: Female
  Weight: 104.3 kg

DRUGS (5)
  1. FUROSEMIDE [Suspect]
     Indication: HYPERTENSION
     Dates: start: 2008
  2. METOPROLOL TARTRATE (METOPROLOL TARTRATE) (METOPROLOL TARTRATE) [Suspect]
  3. THYROXINE [Concomitant]
  4. RAMIPRIL [Concomitant]
  5. WARFARIN [Concomitant]

REACTIONS (2)
  - Muscle tightness [None]
  - Musculoskeletal stiffness [None]
